FAERS Safety Report 6116405-7 (Version None)
Quarter: 2009Q1

REPORT INFORMATION
  Report Type: 
  Country: None (occurrence: None)
  Receive Date: 20090314
  Receipt Date: 20090102
  Transmission Date: 20090719
  Serious: Yes (Hospitalization)
  Sender: FDA-Public Use
  Company Number: US-ABBOTT-08P-163-0492129-00

PATIENT
  Sex: Female
  Weight: 83.99 kg

DRUGS (5)
  1. HUMIRA [Suspect]
     Indication: CROHN'S DISEASE
     Route: 058
     Dates: start: 20071115
  2. AZATHIOPRINE [Concomitant]
     Indication: CROHN'S DISEASE
     Dates: start: 20081209
  3. TRAMADOL HCL [Concomitant]
     Indication: PAIN
     Dates: start: 20081209
  4. INSULIN [Concomitant]
     Indication: BLOOD GLUCOSE ABNORMAL
  5. EPIPEN [Concomitant]
     Indication: HYPERSENSITIVITY

REACTIONS (3)
  - ABDOMINAL PAIN UPPER [None]
  - CROHN'S DISEASE [None]
  - SMALL INTESTINAL OBSTRUCTION [None]
